FAERS Safety Report 4875982-4 (Version None)
Quarter: 2005Q4

REPORT INFORMATION
  Report Type: 
  Country: None (occurrence: None)
  Receive Date: 20051206
  Receipt Date: 20050914
  Transmission Date: 20060501
  Serious: No
  Sender: FDA-Public Use
  Company Number: IND-AE-05-SAN-059

PATIENT
  Sex: Female

DRUGS (10)
  1. SANCTURA [Suspect]
     Indication: HYPERTONIC BLADDER
     Dosage: 20 MG-BID-ORAL
     Route: 048
  2. ABILIFY TABLETS [Concomitant]
  3. CONCERTA TABLETS [Concomitant]
  4. EFFEXOR XR [Concomitant]
  5. LODINE XL TABLETS [Concomitant]
  6. LO ESRIN TABLETS [Concomitant]
  7. FOSAMAX [Concomitant]
  8. KLONOPIN [Concomitant]
  9. PREVACID CAPSULES [Concomitant]
  10. TRAZODONE HCL [Concomitant]

REACTIONS (2)
  - DRY EYE [None]
  - DRY MOUTH [None]
